FAERS Safety Report 9736734 (Version 4)
Quarter: 2013Q4

REPORT INFORMATION
  Report Type: Report from Study
  Country: AR (occurrence: AR)
  Receive Date: 20131206
  Receipt Date: 20131226
  Transmission Date: 20140711
  Serious: Yes (Hospitalization)
  Sender: FDA-Public Use
  Company Number: PHHO2013AR015723

PATIENT
  Sex: 0

DRUGS (7)
  1. ALISKIREN [Suspect]
     Indication: CARDIAC FAILURE CHRONIC
     Dosage: UNK
     Route: 048
     Dates: start: 20130531, end: 20131129
  2. ALISKIREN [Suspect]
     Dosage: UNK
     Route: 048
     Dates: start: 20131204
  3. ASPIRINETAS [Suspect]
     Indication: ANTIPLATELET THERAPY
     Dosage: 100 MG,7 DAY
     Dates: start: 20120207, end: 20121129
  4. CARVEDILOL [Concomitant]
     Indication: CARDIAC FAILURE
     Dosage: 12.5 MG, PER DAY
     Dates: start: 20110114, end: 20131129
  5. LOSARTAN [Concomitant]
     Indication: HYPERTENSION
     Dosage: 100 MG,PER DAY
     Dates: start: 20110318, end: 20121129
  6. HYDROCHLOROTHIAZIDE [Concomitant]
     Indication: CARDIAC FAILURE
     Dosage: 25 MG, PER DAY
     Dates: start: 20130313, end: 20131129
  7. AMIODARONE [Concomitant]
     Indication: VENTRICULAR ARRHYTHMIA
     Dosage: 100 MG, PER DAY
     Dates: start: 20130331, end: 20131129

REACTIONS (2)
  - Portal hypertensive gastropathy [Recovering/Resolving]
  - Upper gastrointestinal haemorrhage [Recovered/Resolved]
